FAERS Safety Report 25425234 (Version 1)
Quarter: 2025Q2

REPORT INFORMATION
  Report Type: Spontaneous
  Country: US (occurrence: US)
  Receive Date: 20250611
  Receipt Date: 20250611
  Transmission Date: 20250716
  Serious: Yes (Hospitalization)
  Sender: AMGEN
  Company Number: US-AMGEN-USASP2025111269

PATIENT
  Age: 35 Year
  Sex: Female

DRUGS (7)
  1. BEVACIZUMAB [Suspect]
     Active Substance: BEVACIZUMAB
     Indication: Ovarian cancer
     Route: 065
  2. CARBOPLATIN [Concomitant]
     Active Substance: CARBOPLATIN
     Indication: Ovarian cancer
  3. PACLITAXEL [Concomitant]
     Active Substance: PACLITAXEL
     Indication: Ovarian cancer
  4. FULVESTRANT [Concomitant]
     Active Substance: FULVESTRANT
     Indication: Ovarian cancer
  5. AVUTOMETINIB [Concomitant]
     Active Substance: AVUTOMETINIB
     Indication: Ovarian cancer
  6. LETROZOLE [Concomitant]
     Active Substance: LETROZOLE
     Indication: Ovarian cancer
  7. RIBOCICLIB [Concomitant]
     Active Substance: RIBOCICLIB
     Indication: Ovarian cancer

REACTIONS (2)
  - Small intestinal obstruction [Unknown]
  - Ovarian cancer metastatic [Unknown]
